FAERS Safety Report 5526291-1 (Version None)
Quarter: 2007Q4

REPORT INFORMATION
  Report Type: 
  Country: None (occurrence: None)
  Receive Date: 20071127
  Receipt Date: 20071116
  Transmission Date: 20080405
  Serious: Yes (Other)
  Sender: FDA-Public Use
  Company Number: JP-JNJFOC-20071002208

PATIENT
  Sex: Female

DRUGS (7)
  1. REMICADE [Suspect]
     Indication: RHEUMATOID ARTHRITIS
     Route: 042
  2. PROGRAF [Suspect]
     Indication: DRUG USE FOR UNKNOWN INDICATION
     Route: 048
  3. PREDONINE [Suspect]
     Indication: DRUG USE FOR UNKNOWN INDICATION
     Route: 048
  4. RHEUMATREX [Concomitant]
     Route: 048
  5. RHEUMATREX [Concomitant]
     Indication: RHEUMATOID ARTHRITIS
     Route: 048
  6. ISCOTIN [Concomitant]
     Indication: PROPHYLAXIS
     Route: 048
  7. PYDOXAL [Concomitant]
     Indication: PROPHYLAXIS

REACTIONS (2)
  - HEPATIC FUNCTION ABNORMAL [None]
  - LYMPH NODE TUBERCULOSIS [None]
